FAERS Safety Report 9170739 (Version 1)
Quarter: 2013Q1

REPORT INFORMATION
  Report Type: Spontaneous
  Country: US (occurrence: None)
  Receive Date: 20130312
  Receipt Date: 20130312
  Transmission Date: 20140127
  Serious: Yes (Hospitalization)
  Sender: FDA-Public Use
  Company Number: FK201300680

PATIENT
  Age: 45 Year
  Sex: Female

DRUGS (3)
  1. DEXAMETHASONE [Suspect]
     Indication: ADDISON^S DISEASE
  2. FLUDROCORTISONE (FLUDROCORTISONE) [Concomitant]
  3. HYDROCORTISONE (HYDROCORTISONE) (HYDROCORTISONE) [Concomitant]

REACTIONS (2)
  - Diabetic ketoacidosis [None]
  - Otitis externa [None]
